FAERS Safety Report 14512443 (Version 4)
Quarter: 2019Q2

REPORT INFORMATION
  Report Type: Spontaneous
  Country: US (occurrence: US)
  Receive Date: 20180209
  Receipt Date: 20190506
  Transmission Date: 20190711
  Serious: Yes (Hospitalization, Other)
  Sender: FDA-Public Use
  Company Number: US-BRISTOL-MYERS SQUIBB COMPANY-BMS-2018-009341

PATIENT
  Sex: Female
  Weight: 58.05 kg

DRUGS (6)
  1. ORENCIA [Suspect]
     Active Substance: ABATACEPT
     Indication: OSTEOPOROSIS
     Dosage: 125 MILLIGRAM, QWK
     Route: 058
     Dates: start: 201801
  2. ORENCIA [Suspect]
     Active Substance: ABATACEPT
     Indication: OSTEITIS DEFORMANS
     Route: 065
  3. ORENCIA [Suspect]
     Active Substance: ABATACEPT
     Indication: OSTEOPOROSIS
     Route: 065
  4. ORENCIA [Suspect]
     Active Substance: ABATACEPT
     Indication: RHEUMATOID ARTHRITIS
     Dosage: 125 MG, QWK
     Route: 058
     Dates: start: 201710
  5. ORENCIA [Suspect]
     Active Substance: ABATACEPT
     Indication: OSTEITIS DEFORMANS
     Route: 065
  6. ORENCIA [Suspect]
     Active Substance: ABATACEPT
     Indication: RHEUMATOID ARTHRITIS
     Dosage: 125 MG, QWK
     Route: 058
     Dates: start: 201611

REACTIONS (6)
  - Malaise [Unknown]
  - Fall [Unknown]
  - Pericardial effusion [Unknown]
  - Cough [Unknown]
  - Influenza like illness [Unknown]
  - Upper respiratory tract infection [Unknown]
